FAERS Safety Report 8502118-0 (Version None)
Quarter: 2012Q3

REPORT INFORMATION
  Report Type: 
  Country: None (occurrence: None)
  Receive Date: 20120711
  Receipt Date: 20120629
  Transmission Date: 20120928
  Serious: No
  Sender: FDA-Public Use
  Company Number: US-JNJFOC-20120701836

PATIENT
  Sex: Male
  Weight: 99.79 kg

DRUGS (5)
  1. NITROGLYCERIN [Concomitant]
     Indication: CARDIAC DISORDER
     Dosage: SUBLINGUAL
  2. OXYCONTIN [Concomitant]
     Indication: PAIN
     Route: 048
     Dates: start: 20111201
  3. PREVACID [Concomitant]
     Indication: GASTRIC DISORDER
     Route: 048
     Dates: start: 20020101
  4. NITROGLYCERIN [Concomitant]
     Dosage: ORAL
  5. FENTANYL-100 [Suspect]
     Indication: BACK PAIN
     Route: 062
     Dates: start: 20120628

REACTIONS (2)
  - PRODUCT QUALITY ISSUE [None]
  - WRONG TECHNIQUE IN DRUG USAGE PROCESS [None]
